FAERS Safety Report 6100592-0 (Version None)
Quarter: 2009Q1

REPORT INFORMATION
  Report Type: 
  Country: None (occurrence: None)
  Receive Date: 20090227
  Receipt Date: 20090227
  Transmission Date: 20090719
  Serious: Yes (Life-Threatening, Other)
  Sender: FDA-Public Use
  Company Number: None

PATIENT
  Age: 34 Year
  Sex: Female
  Weight: 88.4514 kg

DRUGS (2)
  1. CYMBALTA [Suspect]
     Indication: DEPRESSION
     Dosage: 60 MG DAILY PO
     Route: 048
     Dates: start: 20080101, end: 20090216
  2. CYMBALTA [Suspect]
     Dosage: 30 MG DAILY PO
     Route: 048
     Dates: start: 20090216, end: 20090220

REACTIONS (9)
  - ABNORMAL BEHAVIOUR [None]
  - BLOOD PRESSURE INADEQUATELY CONTROLLED [None]
  - CHILLS [None]
  - DISTURBANCE IN ATTENTION [None]
  - DIZZINESS [None]
  - IMPAIRED WORK ABILITY [None]
  - MOOD SWINGS [None]
  - NO THERAPEUTIC RESPONSE [None]
  - SOCIAL PROBLEM [None]
